FAERS Safety Report 8391432-8 (Version None)
Quarter: 2012Q1

REPORT INFORMATION
  Report Type: 
  Country: None (occurrence: None)
  Receive Date: 20120323
  Receipt Date: 20110325
  Transmission Date: 20120608
  Serious: Yes (Other)
  Sender: FDA-Public Use
  Company Number: 163-21880-11033307

PATIENT
  Sex: Male
  Weight: 63.5 kg

DRUGS (2)
  1. REVLIMID [Suspect]
     Indication: MULTIPLE MYELOMA
     Dosage: 10 MG, 1 IN 1 D, PO ; 10 MG, 1 IN 1 D, PO
     Route: 048
     Dates: start: 20101202
  2. REVLIMID [Suspect]
     Indication: MULTIPLE MYELOMA
     Dosage: 10 MG, 1 IN 1 D, PO ; 10 MG, 1 IN 1 D, PO
     Route: 048
     Dates: start: 20100428, end: 20100901

REACTIONS (3)
  - DYSPNOEA EXERTIONAL [None]
  - CONSTIPATION [None]
  - INFECTION [None]
